FAERS Safety Report 9104325 (Version 2)
Quarter: 2013Q4

REPORT INFORMATION
  Report Type: Spontaneous
  Country: GB (occurrence: GB)
  Receive Date: 20130220
  Receipt Date: 20131022
  Transmission Date: 20140711
  Serious: Yes (Other)
  Sender: FDA-Public Use
  Company Number: PHHY2013GB014632

PATIENT
  Age: 46 Year
  Sex: Male
  Weight: 86 kg

DRUGS (5)
  1. BISOPROLOL FUMARATE SANDOZ [Suspect]
     Indication: HYPERTENSION
     Dosage: 10 MG, QD
     Route: 048
     Dates: start: 20120906, end: 20121225
  2. BISOPROLOL FUMARATE SANDOZ [Suspect]
     Dosage: 5 MG, QD
     Route: 048
     Dates: start: 20121225
  3. RAMIPRIL [Concomitant]
     Dosage: 10 MG, QD
  4. DOXAZOSIN [Concomitant]
     Dosage: 4 MG, QD
  5. DOXAZOSIN [Concomitant]
     Dosage: 2 MG, BID

REACTIONS (5)
  - Disturbance in attention [Recovering/Resolving]
  - Dissociation [Recovering/Resolving]
  - Flat affect [Recovering/Resolving]
  - Dementia [Recovering/Resolving]
  - Erectile dysfunction [Unknown]
